FAERS Safety Report 19456140 (Version 21)
Quarter: 2024Q1

REPORT INFORMATION
  Report Type: Other
  Country: AT (occurrence: None)
  Receive Date: 20210624
  Receipt Date: 20240328
  Transmission Date: 20240410
  Serious: Yes (Hospitalization, Other)
  Sender: FDA-Public Use
  Company Number: AT-ROCHE-2690882

PATIENT
  Age: 53 Year
  Sex: Female
  Weight: 93 kg

DRUGS (70)
  1. ATEZOLIZUMAB [Suspect]
     Active Substance: ATEZOLIZUMAB
     Indication: Non-small cell lung cancer metastatic
     Dosage: VISIT 1?ON 27/MAR/2020, 25/MAY/2020, 15/JUN/2020, 06/JUL/2020, 27/JUL/2020, 17/AUG/2020, 07/SEP/2020
     Route: 041
     Dates: start: 20200327
  2. ATEZOLIZUMAB [Suspect]
     Active Substance: ATEZOLIZUMAB
     Dosage: RECEIVED BEFORE SIGNING THE INFORMED CONSENT
     Route: 041
     Dates: start: 20200327
  3. PANTOPRAZOLE SODIUM [Concomitant]
     Active Substance: PANTOPRAZOLE SODIUM
     Dates: start: 201911, end: 20220514
  4. EUTHYROX [Concomitant]
     Active Substance: LEVOTHYROXINE SODIUM
     Indication: Autoimmune thyroiditis
     Dates: end: 20220514
  5. ZOLPIDEM TARTRATE [Concomitant]
     Active Substance: ZOLPIDEM TARTRATE
     Dates: end: 20210913
  6. DRONABINOL [Concomitant]
     Active Substance: DRONABINOL
     Dates: end: 20220514
  7. HYDROMORPHONE HYDROCHLORIDE [Concomitant]
     Active Substance: HYDROMORPHONE HYDROCHLORIDE
     Indication: Prophylaxis
     Dates: end: 20210602
  8. HYDROMORPHONE HYDROCHLORIDE [Concomitant]
     Active Substance: HYDROMORPHONE HYDROCHLORIDE
     Indication: Prophylaxis
     Dates: end: 20210602
  9. CIPRALEX [Concomitant]
     Active Substance: ESCITALOPRAM OXALATE
     Indication: Prophylaxis
     Dates: start: 20210323
  10. ALPRAZOLAM [Concomitant]
     Active Substance: ALPRAZOLAM
     Dates: end: 20200727
  11. PARACODIN [Concomitant]
     Indication: Acute respiratory failure
     Dates: start: 20190426, end: 20220514
  12. MORPHINE [Concomitant]
     Active Substance: MORPHINE
     Indication: Dyspnoea
     Dates: start: 202002, end: 20210602
  13. MORPHINE [Concomitant]
     Active Substance: MORPHINE
     Dates: start: 20220427, end: 20220514
  14. ZOFRAN [Concomitant]
     Active Substance: ONDANSETRON HYDROCHLORIDE
     Dates: end: 20220514
  15. FOSTER [Concomitant]
     Active Substance: BECLOMETHASONE\FORMOTEROL
     Dates: start: 202002, end: 20200727
  16. FENOTEROL HYDROBROMIDE\IPRATROPIUM BROMIDE [Concomitant]
     Active Substance: FENOTEROL HYDROBROMIDE\IPRATROPIUM BROMIDE
     Dates: start: 202002, end: 202204
  17. NOVALGIN (AUSTRIA) [Concomitant]
     Dates: start: 202002, end: 20210602
  18. XGEVA [Concomitant]
     Active Substance: DENOSUMAB
     Dates: start: 20200313, end: 20210916
  19. CALCIUM CARBONATE\CHOLECALCIFEROL [Concomitant]
     Active Substance: CALCIUM CARBONATE\CHOLECALCIFEROL
     Dates: start: 20200327, end: 20211111
  20. DEXAMETHASONE [Concomitant]
     Active Substance: DEXAMETHASONE
     Dates: start: 20200525, end: 20201014
  21. DEXAMETHASONE [Concomitant]
     Active Substance: DEXAMETHASONE
     Dates: start: 20201229, end: 20210119
  22. DEXAMETHASONE [Concomitant]
     Active Substance: DEXAMETHASONE
     Dates: start: 20220429, end: 20220514
  23. FRAGMIN [Concomitant]
     Active Substance: DALTEPARIN SODIUM
     Dates: start: 20200414, end: 20200419
  24. EDOXABAN TOSYLATE [Concomitant]
     Active Substance: EDOXABAN TOSYLATE
     Dates: start: 20200420, end: 20220428
  25. MYCOSTATIN [Concomitant]
     Active Substance: NYSTATIN
     Indication: Oral candidiasis
     Dates: start: 20200706, end: 20200928
  26. BETAISODONA [Concomitant]
     Active Substance: POVIDONE-IODINE
     Dates: start: 20200727, end: 20200817
  27. ERYTHROCYTES, CONCENTRATED [Concomitant]
     Indication: Haemoglobin decreased
     Dates: start: 20211118, end: 20211118
  28. CARBOPLATIN [Concomitant]
     Active Substance: CARBOPLATIN
     Indication: Neoplasm malignant
     Dates: start: 20210929
  29. NAVELBINE [Concomitant]
     Active Substance: VINORELBINE TARTRATE
     Indication: Neoplasm malignant
  30. MORPHINE [Concomitant]
     Active Substance: MORPHINE
     Dates: start: 20200817, end: 202204
  31. DEXPANTHENOL [Concomitant]
     Active Substance: DEXPANTHENOL
     Dates: start: 20200817, end: 202204
  32. LYRICA [Concomitant]
     Active Substance: PREGABALIN
     Dates: start: 20210205, end: 20220428
  33. LYRICA [Concomitant]
     Active Substance: PREGABALIN
     Dates: start: 20220429, end: 20220514
  34. TIZANIDINE [Concomitant]
     Active Substance: TIZANIDINE
     Dates: start: 20210209, end: 20210211
  35. LASIX [Concomitant]
     Active Substance: FUROSEMIDE
     Indication: Dyspnoea
     Dates: start: 20210209, end: 20210209
  36. AVELOX [Concomitant]
     Active Substance: MOXIFLOXACIN HYDROCHLORIDE
     Dates: start: 20210205, end: 20210211
  37. BISOPROLOL FUMARATE [Concomitant]
     Active Substance: BISOPROLOL FUMARATE
     Indication: Prophylaxis
     Dates: start: 20210218, end: 20220514
  38. DICLOFENAC SODIUM\ORPHENADRINE CITRATE [Concomitant]
     Active Substance: DICLOFENAC SODIUM\ORPHENADRINE CITRATE
     Dates: start: 20210415, end: 20210415
  39. DICLOFENAC SODIUM\ORPHENADRINE CITRATE [Concomitant]
     Active Substance: DICLOFENAC SODIUM\ORPHENADRINE CITRATE
     Dates: start: 20220428, end: 20220514
  40. AMITRIPTYLINE [Concomitant]
     Active Substance: AMITRIPTYLINE
     Dates: start: 20210323, end: 20210323
  41. AMITRIPTYLINE [Concomitant]
     Active Substance: AMITRIPTYLINE
     Dates: start: 20210330, end: 20210405
  42. AMITRIPTYLINE [Concomitant]
     Active Substance: AMITRIPTYLINE
     Dates: start: 20210406
  43. OXYGEROLAN [Concomitant]
     Dates: start: 20210602
  44. OXYGEROLAN [Concomitant]
     Dates: start: 20210602
  45. DIPYRONE [Concomitant]
     Active Substance: DIPYRONE
     Dates: start: 20210602
  46. ASCORBIC ACID\CALCIUM PHOSPHATE\CHOLECALCIFEROL\CITRIC ACID MONOHYDRAT [Concomitant]
     Active Substance: ASCORBIC ACID\CALCIUM PHOSPHATE\CHOLECALCIFEROL\CITRIC ACID MONOHYDRATE
     Indication: Prophylaxis
     Dosage: 500MG/800IE
     Dates: start: 20211111
  47. SYMBICORT [Concomitant]
     Active Substance: BUDESONIDE\FORMOTEROL FUMARATE DIHYDRATE
     Dates: start: 20200727, end: 20210119
  48. PASPERTIN [Concomitant]
     Dates: start: 20210205, end: 202204
  49. PASPERTIN [Concomitant]
     Dates: start: 20220427, end: 20220514
  50. LOPERAMIDE HYDROCHLORIDE [Concomitant]
     Active Substance: LOPERAMIDE HYDROCHLORIDE
     Dates: start: 20210205, end: 202204
  51. OLODATEROL HYDROCHLORIDE\TIOTROPIUM BROMIDE MONOHYDRATE [Concomitant]
     Active Substance: OLODATEROL HYDROCHLORIDE\TIOTROPIUM BROMIDE MONOHYDRATE
     Dates: start: 20210906, end: 202204
  52. ARANESP [Concomitant]
     Active Substance: DARBEPOETIN ALFA
     Dosage: 150MCG
     Dates: start: 20210916, end: 202204
  53. NEULASTA [Concomitant]
     Active Substance: PEGFILGRASTIM
     Dates: start: 20211209, end: 202204
  54. OXYGEROLAN [Concomitant]
     Dates: start: 20210602
  55. OXYGEROLAN [Concomitant]
     Dates: start: 20210602
  56. BUSCAPINA (AUSTRIA) [Concomitant]
     Dates: start: 20220427, end: 20220514
  57. MOXIFLOXACIN KABI [Concomitant]
     Dosage: 400MG/250ML
     Dates: start: 20220427, end: 20220514
  58. KONAKION [Concomitant]
     Active Substance: PHYTONADIONE
     Indication: Gamma-glutamyltransferase increased
     Dosage: 10MG/ML
     Dates: start: 20220427, end: 20220514
  59. METAMIZOL [Concomitant]
     Active Substance: METAMIZOLE SODIUM
     Dates: start: 20220427, end: 20220514
  60. ACETAMINOPHEN [Concomitant]
     Active Substance: ACETAMINOPHEN
     Dosage: 1000MG/100 ML
     Dates: start: 20220427, end: 20220514
  61. NAPROXEN [Concomitant]
     Active Substance: NAPROXEN
     Dates: start: 20220407, end: 20220514
  62. ATEZOLIZUMAB [Concomitant]
     Active Substance: ATEZOLIZUMAB
     Route: 065
  63. DEXAMETHASONE [Concomitant]
     Active Substance: DEXAMETHASONE
     Dates: start: 20201229, end: 20210119
  64. TIZANIDINE [Concomitant]
     Active Substance: TIZANIDINE
     Dates: start: 20210209, end: 20210211
  65. LASIX [Concomitant]
     Active Substance: FUROSEMIDE
     Indication: Dyspnoea
     Dates: start: 20210209, end: 20210209
  66. AVELOX [Concomitant]
     Active Substance: MOXIFLOXACIN HYDROCHLORIDE
     Dates: start: 20210205, end: 20210211
  67. SYMBICORT [Concomitant]
     Active Substance: BUDESONIDE\FORMOTEROL FUMARATE DIHYDRATE
     Dates: start: 20200727, end: 20210119
  68. PERFALGAN [Concomitant]
     Active Substance: ACETAMINOPHEN
     Dates: start: 20210205
  69. ELO MEL ISOTON [Concomitant]
     Dates: start: 20210906, end: 20210916
  70. CLINDAMYCIN [Concomitant]
     Active Substance: CLINDAMYCIN
     Indication: Tooth abscess
     Dates: start: 20211221, end: 20220118

REACTIONS (8)
  - Peripheral embolism [Recovering/Resolving]
  - Colitis [Recovering/Resolving]
  - Clostridium difficile infection [Recovering/Resolving]
  - Colitis [Recovered/Resolved with Sequelae]
  - Deep vein thrombosis [Recovered/Resolved]
  - Weight decreased [Not Recovered/Not Resolved]
  - Diarrhoea [Recovered/Resolved]
  - Tension headache [Unknown]

NARRATIVE: CASE EVENT DATE: 20200414
